FAERS Safety Report 19099864 (Version 1)
Quarter: 2021Q2

REPORT INFORMATION
  Report Type: Spontaneous
  Country: JP (occurrence: JP)
  Receive Date: 20210406
  Receipt Date: 20210406
  Transmission Date: 20210717
  Serious: Yes (Hospitalization)
  Sender: FDA-Public Use
  Company Number: JP-AMGEN-JPNSP2020163962

PATIENT
  Age: 8 Decade
  Sex: Female
  Weight: 89 kg

DRUGS (11)
  1. DENOTAS [Concomitant]
     Active Substance: CALCIUM CARBONATE\CHOLECALCIFEROL\MAGNESIUM CARBONATE
     Indication: METASTASES TO BONE
     Dosage: 2 DF, QD
     Route: 048
     Dates: start: 20181122
  2. CYMBALTA [Concomitant]
     Active Substance: DULOXETINE HYDROCHLORIDE
     Indication: PAIN
     Dosage: 3 DF, QD
     Route: 048
     Dates: start: 20180831
  3. METHAPAIN [Concomitant]
     Active Substance: METHADONE HYDROCHLORIDE
     Indication: PAIN
     Dosage: 5 MG, TID
     Route: 048
     Dates: start: 20190318
  4. PREDONINE [Suspect]
     Active Substance: PREDNISOLONE
     Indication: MALAISE
     Dosage: 5 MG, QD
     Route: 048
     Dates: start: 20190304, end: 20200924
  5. RANMARK [Suspect]
     Active Substance: DENOSUMAB
     Dosage: UNK UNK, Q4WK
     Route: 058
     Dates: start: 20210128
  6. XYZAL [Concomitant]
     Active Substance: LEVOCETIRIZINE DIHYDROCHLORIDE
     Indication: RHINITIS ALLERGIC
     Dosage: 5 MG, QD
     Route: 048
     Dates: start: 20180912
  7. OXYCONTIN [Concomitant]
     Active Substance: OXYCODONE HYDROCHLORIDE
     Indication: PAIN
     Dosage: 5 MG, BID
     Route: 048
     Dates: start: 20180827
  8. IBRANCE [Concomitant]
     Active Substance: PALBOCICLIB
     Indication: BREAST CANCER
     Dosage: 2 DF, QD
     Route: 048
     Dates: start: 20181011
  9. MAGMITT [Concomitant]
     Active Substance: MAGNESIUM OXIDE
     Indication: CONSTIPATION
     Dosage: 2 DF, TID
     Route: 048
     Dates: start: 20180827
  10. FEMARA [Concomitant]
     Active Substance: LETROZOLE
     Indication: BREAST CANCER
     Dosage: 2.5 MG, QD
     Route: 048
     Dates: start: 20180820
  11. RANMARK [Suspect]
     Active Substance: DENOSUMAB
     Indication: METASTASES TO BONE
     Dosage: UNK, Q4WK
     Route: 058
     Dates: start: 20181122, end: 20200924

REACTIONS (2)
  - Malaise [Unknown]
  - Rapidly progressive osteoarthritis [Recovered/Resolved]

NARRATIVE: CASE EVENT DATE: 20200923
